FAERS Safety Report 19759702 (Version 1)
Quarter: 2021Q3

REPORT INFORMATION
  Report Type: Other
  Country: PT (occurrence: PT)
  Receive Date: 20210830
  Receipt Date: 20210830
  Transmission Date: 20211014
  Serious: Yes (Other)
  Sender: FDA-Public Use
  Company Number: PT-ASPEN-GLO2021PT006845

PATIENT

DRUGS (1)
  1. DEXAMETHASONE. [Suspect]
     Active Substance: DEXAMETHASONE
     Indication: COVID-19
     Dosage: UNK
     Route: 042
     Dates: start: 20201212, end: 20201216

REACTIONS (2)
  - Off label use [Unknown]
  - Diabetic metabolic decompensation [Unknown]

NARRATIVE: CASE EVENT DATE: 20201217
